FAERS Safety Report 5458497-4 (Version None)
Quarter: 2007Q3

REPORT INFORMATION
  Report Type: 
  Country: None (occurrence: None)
  Receive Date: 20070813
  Receipt Date: 20070327
  Transmission Date: 20080115
  Serious: Yes (Hospitalization)
  Sender: FDA-Public Use
  Company Number: 20073617

PATIENT
  Age: 77 Year
  Sex: Male

DRUGS (4)
  1. LIORESAL [Suspect]
     Indication: MUSCLE SPASTICITY
     Dosage: MCG, DAILY, INTRATHECAL
     Route: 039
  2. HYDROMORPHONE 5MG/CC [Concomitant]
  3. CLONIDINE 750 MCG/CC [Concomitant]
  4. COUMPOUNDED BACLOFEN 150 MCG/CC [Concomitant]

REACTIONS (2)
  - NAUSEA [None]
  - PAIN [None]
